FAERS Safety Report 9797125 (Version 1)
Quarter: 2014Q1

REPORT INFORMATION
  Report Type: Spontaneous
  Country: RU (occurrence: RU)
  Receive Date: 20140106
  Receipt Date: 20140106
  Transmission Date: 20141002
  Serious: Yes (Other)
  Sender: FDA-Public Use
  Company Number: PHHY2013RU154330

PATIENT
  Age: 15 Year
  Sex: Female

DRUGS (7)
  1. CICLOSPORIN [Suspect]
     Indication: APLASTIC ANAEMIA
  2. ANTITHYMOCYTE IMMUNOGLOBULIN [Suspect]
     Indication: APLASTIC ANAEMIA
  3. IMMUNOSUPPRESSANTS [Suspect]
  4. FLUDARABINE [Concomitant]
     Dosage: 150 MG/M2, UNK
  5. CYCLOPHOSPHAMIDE [Concomitant]
     Dosage: 100 MG/M2, UNK
  6. TACROLIMUS [Concomitant]
     Indication: PROPHYLAXIS
  7. METHOTREXATE [Concomitant]

REACTIONS (6)
  - Cerebral thrombosis [Recovered/Resolved]
  - Transient ischaemic attack [Recovered/Resolved]
  - Paroxysmal nocturnal haemoglobinuria [Recovered/Resolved]
  - Haemolysis [Recovered/Resolved]
  - Aplastic anaemia [Recovered/Resolved]
  - Therapeutic response decreased [Unknown]
